FAERS Safety Report 6208115-2 (Version None)
Quarter: 2009Q2

REPORT INFORMATION
  Report Type: 
  Country: None (occurrence: None)
  Receive Date: 20090529
  Receipt Date: 20090522
  Transmission Date: 20091009
  Serious: Yes (Other)
  Sender: FDA-Public Use
  Company Number: US-ASTRAZENECA-2009UW13323

PATIENT
  Age: 47 Year
  Sex: Male
  Weight: 101.2 kg

DRUGS (2)
  1. CRESTOR [Suspect]
     Route: 048
  2. VERAPAMIL [Concomitant]
     Route: 048

REACTIONS (2)
  - HIGH DENSITY LIPOPROTEIN DECREASED [None]
  - WHITE BLOOD CELL COUNT DECREASED [None]
